FAERS Safety Report 6143109-7 (Version None)
Quarter: 2009Q2

REPORT INFORMATION
  Report Type: 
  Country: None (occurrence: None)
  Receive Date: 20090403
  Receipt Date: 20090323
  Transmission Date: 20091009
  Serious: Yes (Hospitalization)
  Sender: FDA-Public Use
  Company Number: US-JNJFOC-20090305806

PATIENT
  Age: 70 Year
  Sex: Male
  Weight: 85.4 kg

DRUGS (11)
  1. DOXORUBICIN HCL [Suspect]
     Indication: MULTIPLE MYELOMA
     Route: 042
  2. VELCADE [Suspect]
     Indication: MULTIPLE MYELOMA
     Route: 042
  3. CYTOXAN [Suspect]
     Indication: MULTIPLE MYELOMA
     Route: 042
  4. DEXAMETHASONE [Suspect]
     Indication: MULTIPLE MYELOMA
     Route: 048
  5. ACYCLOVIR [Concomitant]
     Route: 048
  6. TOPROL-XL [Concomitant]
     Route: 048
  7. ASPIRIN [Concomitant]
     Route: 048
  8. VYTORIN [Concomitant]
     Route: 048
  9. TYLENOL [Concomitant]
     Dosage: AS NEEDED
     Route: 065
  10. FLEXERIL [Concomitant]
     Dosage: AS NEEDED
     Route: 048
  11. OXYCODONE HCL [Concomitant]
     Dosage: AS NEEDED
     Route: 048

REACTIONS (12)
  - ACUTE RESPIRATORY FAILURE [None]
  - AGGRESSION [None]
  - AGITATION [None]
  - BLOOD PRESSURE DECREASED [None]
  - DISORIENTATION [None]
  - GASTRITIS [None]
  - INCOHERENT [None]
  - MENTAL STATUS CHANGES [None]
  - PNEUMONIA [None]
  - SPINAL COMPRESSION FRACTURE [None]
  - UNRESPONSIVE TO STIMULI [None]
  - URINE OUTPUT DECREASED [None]
